FAERS Safety Report 18066114 (Version 4)
Quarter: 2020Q3

REPORT INFORMATION
  Report Type: Report from Study
  Country: US (occurrence: US)
  Receive Date: 20200724
  Receipt Date: 20200917
  Transmission Date: 20201103
  Serious: Yes (Hospitalization)
  Sender: FDA-Public Use
  Company Number: US-PUMA BIOTECHNOLOGY, LTD.-2019US010391

PATIENT

DRUGS (7)
  1. NERLYNX [Suspect]
     Active Substance: NERATINIB
     Indication: BREAST CANCER FEMALE
     Dosage: 120 MG (3 TABLETS) DAILY
     Route: 048
     Dates: start: 20191011, end: 20191017
  2. BENADRYL [Suspect]
     Active Substance: DIPHENHYDRAMINE HYDROCHLORIDE
     Indication: PRODUCT USED FOR UNKNOWN INDICATION
  3. NERLYNX [Suspect]
     Active Substance: NERATINIB
     Dosage: 240 MG (6 TABLETS) DAILY
     Route: 048
     Dates: start: 20191025, end: 2019
  4. LAMISIL [Suspect]
     Active Substance: TERBINAFINE HYDROCHLORIDE
     Indication: ONYCHOMYCOSIS
  5. NERLYNX [Suspect]
     Active Substance: NERATINIB
     Dosage: 240 MG (6 TABLETS), DAILY
     Route: 048
     Dates: start: 2019, end: 2020
  6. TUCATINIB [Suspect]
     Active Substance: TUCATINIB
     Indication: PRODUCT USED FOR UNKNOWN INDICATION
     Dosage: 300 MG, BID
     Dates: start: 20200818
  7. NERLYNX [Suspect]
     Active Substance: NERATINIB
     Dosage: 160 MG (4 TABLETS) DAILY
     Route: 048
     Dates: start: 20191018, end: 20191024

REACTIONS (22)
  - Diverticulitis [Unknown]
  - Brain neoplasm [Not Recovered/Not Resolved]
  - Onycholysis [Unknown]
  - Rhinorrhoea [Not Recovered/Not Resolved]
  - Faeces soft [Unknown]
  - Arthralgia [Unknown]
  - Somnolence [Recovering/Resolving]
  - Hypersensitivity [Not Recovered/Not Resolved]
  - Chest discomfort [Recovering/Resolving]
  - Nightmare [Unknown]
  - Constipation [Unknown]
  - Abdominal pain upper [Unknown]
  - Product dose omission issue [Unknown]
  - Drug titration [Unknown]
  - Neuropathy peripheral [Not Recovered/Not Resolved]
  - Blood pressure abnormal [Unknown]
  - Onychomycosis [Not Recovered/Not Resolved]
  - Eye discharge [Not Recovered/Not Resolved]
  - Oropharyngeal pain [Unknown]
  - Dry skin [Unknown]
  - Bone pain [Unknown]
  - Pruritus [Unknown]

NARRATIVE: CASE EVENT DATE: 2019
